FAERS Safety Report 23402561 (Version 3)
Quarter: 2024Q1

REPORT INFORMATION
  Report Type: Spontaneous
  Country: EU (occurrence: EU)
  Receive Date: 20240115
  Receipt Date: 20240221
  Transmission Date: 20240410
  Serious: Yes (Life-Threatening, Hospitalization)
  Sender: FDA-Public Use
  Company Number: None

PATIENT

DRUGS (4)
  1. BUPRENORPHINE HYDROCHLORIDE [Suspect]
     Active Substance: BUPRENORPHINE HYDROCHLORIDE
     Dosage: NP
  2. DIAZEPAM [Suspect]
     Active Substance: DIAZEPAM
     Dosage: NON PR?CIS?
  3. OXAZEPAM [Suspect]
     Active Substance: OXAZEPAM
     Dosage: NP
  4. PREGABALIN [Suspect]
     Active Substance: PREGABALIN
     Dosage: NP

REACTIONS (4)
  - Miosis [Recovered/Resolved]
  - Loss of consciousness [Recovered/Resolved]
  - Toxic encephalopathy [Recovered/Resolved]
  - Drug abuse [Not Recovered/Not Resolved]

NARRATIVE: CASE EVENT DATE: 20230823
